FAERS Safety Report 7993450-8 (Version None)
Quarter: 2011Q4

REPORT INFORMATION
  Report Type: 
  Country: None (occurrence: None)
  Receive Date: 20111219
  Receipt Date: 20110503
  Transmission Date: 20120403
  Serious: Yes (Hospitalization)
  Sender: FDA-Public Use
  Company Number: US-ASTRAZENECA-2011SE15470

PATIENT
  Age: 22778 Day
  Sex: Male
  Weight: 88 kg

DRUGS (5)
  1. LANTUS [Concomitant]
  2. NIASPAN [Concomitant]
  3. JANUMET [Concomitant]
     Dosage: 50/1000 MG, DAILY
  4. WELCHOL [Concomitant]
  5. CRESTOR [Suspect]
     Indication: HYPERCHOLESTEROLAEMIA
     Route: 048

REACTIONS (2)
  - RHABDOMYOLYSIS [None]
  - HEPATITIS ACUTE [None]
